FAERS Safety Report 12813299 (Version 1)
Quarter: 2016Q4

REPORT INFORMATION
  Report Type: Spontaneous
  Country: US (occurrence: US)
  Receive Date: 20161005
  Receipt Date: 20161005
  Transmission Date: 20170207
  Serious: No
  Sender: FDA-Public Use
  Company Number: US-BAYER-2016-187658

PATIENT
  Age: 82 Year
  Sex: Female
  Weight: 53.52 kg

DRUGS (6)
  1. SYNTHROID [Concomitant]
     Active Substance: LEVOTHYROXINE SODIUM
  2. OXYCONTIN [Concomitant]
     Active Substance: OXYCODONE HYDROCHLORIDE
  3. ALEVE [Suspect]
     Active Substance: NAPROXEN SODIUM
     Indication: PAIN
     Dosage: 1 DF, QD, TWO DAYS IN A ROW
     Route: 048
     Dates: start: 20160924, end: 20160925
  4. BACLOFEN. [Concomitant]
     Active Substance: BACLOFEN
  5. DIAZEPAM. [Concomitant]
     Active Substance: DIAZEPAM
  6. ALEVE [Suspect]
     Active Substance: NAPROXEN SODIUM
     Indication: PAIN
     Dosage: 1 DF, 3-4 TIMES WEEKLY
     Route: 048
     Dates: start: 2015

REACTIONS (2)
  - Product use issue [Unknown]
  - Drug ineffective [Unknown]

NARRATIVE: CASE EVENT DATE: 20160925
